FAERS Safety Report 5027565-3 (Version None)
Quarter: 2006Q2

REPORT INFORMATION
  Report Type: 
  Country: None (occurrence: None)
  Receive Date: 20060616
  Receipt Date: 20060604
  Transmission Date: 20061013
  Serious: Yes (Hospitalization)
  Sender: FDA-Public Use
  Company Number: US-AMGEN-STX181857

PATIENT
  Sex: Female

DRUGS (2)
  1. ENBREL [Suspect]
     Indication: RHEUMATOID ARTHRITIS
     Route: 058
     Dates: start: 20010901
  2. PLAQUENIL [Concomitant]

REACTIONS (6)
  - BIOPSY BREAST ABNORMAL [None]
  - BONE OPERATION [None]
  - CATARACT [None]
  - FALL [None]
  - LOCALISED INFECTION [None]
  - UPPER LIMB FRACTURE [None]
